FAERS Safety Report 19683466 (Version 1)
Quarter: 2021Q3

REPORT INFORMATION
  Report Type: Spontaneous
  Country: US (occurrence: US)
  Receive Date: 20210811
  Receipt Date: 20210811
  Transmission Date: 20211014
  Serious: Yes (Other)
  Sender: FDA-Public Use
  Company Number: US-NOVOPROD-836096

PATIENT
  Sex: Female

DRUGS (1)
  1. VICTOZA [Suspect]
     Active Substance: LIRAGLUTIDE
     Indication: METABOLIC SYNDROME
     Dosage: UNK
     Route: 058
     Dates: start: 2019

REACTIONS (4)
  - Vertigo [Unknown]
  - Off label use [Unknown]
  - Speech disorder [Unknown]
  - Headache [Unknown]

NARRATIVE: CASE EVENT DATE: 2019
